FAERS Safety Report 15718460 (Version 1)
Quarter: 2018Q4

REPORT INFORMATION
  Report Type: Spontaneous
  Country: US (occurrence: US)
  Receive Date: 20181213
  Receipt Date: 20181213
  Transmission Date: 20190205
  Serious: Yes (Hospitalization)
  Sender: FDA-Public Use
  Company Number: None

PATIENT
  Sex: Male

DRUGS (7)
  1. TESTOSTERONE ENANTHATE MDV [Suspect]
     Active Substance: TESTOSTERONE ENANTHATE
     Indication: TESTICULAR DISORDER
     Dosage: ?          OTHER FREQUENCY:TWICE WEEKLY;?
     Route: 030
  2. CARVEDILOL TAB 6.25MG [Concomitant]
     Active Substance: CARVEDILOL
     Dates: start: 20181114
  3. VENTOLIN HFA AER [Concomitant]
     Dates: start: 20181108
  4. TRIAMCINOLONE OIN 0.1% [Concomitant]
     Dates: start: 20181109
  5. LEVOTHYROXINE TAB 200MCG [Concomitant]
     Dates: start: 20181105
  6. VALSART/HCTZ TAB 160-25MG [Concomitant]
     Dates: start: 20181210
  7. CIPROFLOXACIN TAB 500MG [Concomitant]
     Dates: start: 20181114

REACTIONS (2)
  - Product dose omission [None]
  - Sepsis [None]
